FAERS Safety Report 15401286 (Version 1)
Quarter: 2018Q4

REPORT INFORMATION
  Report Type: Spontaneous
  Country: US (occurrence: US)
  Receive Date: 20180919
  Receipt Date: 20180919
  Transmission Date: 20190204
  Serious: Yes (Other)
  Sender: FDA-Public Use
  Company Number: US-UNICHEM PHARMACEUTICALS (USA) INC-UCM201809-000213

PATIENT
  Sex: Male
  Weight: 72.5 kg

DRUGS (4)
  1. HYDROCHOLOTHIAZIDE 25 MG TABLET [Suspect]
     Active Substance: HYDROCHLOROTHIAZIDE
     Indication: POLYURIA
     Route: 048
  2. ATENOLOL. [Concomitant]
     Active Substance: ATENOLOL
     Indication: BLOOD PRESSURE MANAGEMENT
  3. ALOPURINOL [Concomitant]
     Active Substance: ALLOPURINOL
     Indication: GOUT
     Dosage: EVERY OTHER DAY, STATE DTAKING IT ABOUT 10 YEARS AGO
  4. LISINOPRIL. [Concomitant]
     Active Substance: LISINOPRIL
     Indication: BLOOD CHOLESTEROL

REACTIONS (6)
  - Skin cancer [Recovered/Resolved]
  - Dysgeusia [Not Recovered/Not Resolved]
  - Surgery [Unknown]
  - Deafness [Not Recovered/Not Resolved]
  - Decreased appetite [Recovering/Resolving]
  - Neoplasm malignant [Unknown]
